FAERS Safety Report 6377859-4 (Version None)
Quarter: 2009Q3

REPORT INFORMATION
  Report Type: 
  Country: None (occurrence: None)
  Receive Date: 20090925
  Receipt Date: 20090724
  Transmission Date: 20100115
  Serious: No
  Sender: FDA-Public Use
  Company Number: US-ABBOTT-09P-163-0587924-00

PATIENT
  Sex: Male
  Weight: 83.99 kg

DRUGS (5)
  1. TRICOR [Suspect]
     Indication: BLOOD TRIGLYCERIDES INCREASED
     Dates: start: 20060101, end: 20090301
  2. PRAVACHOL [Suspect]
     Indication: DRUG USE FOR UNKNOWN INDICATION
     Dates: start: 20060101, end: 20090301
  3. DIOVAN [Concomitant]
     Indication: DRUG USE FOR UNKNOWN INDICATION
  4. PROZAC [Concomitant]
     Indication: DRUG USE FOR UNKNOWN INDICATION
  5. ASPIRIN [Concomitant]
     Indication: DRUG USE FOR UNKNOWN INDICATION

REACTIONS (1)
  - ARTHRALGIA [None]
